FAERS Safety Report 9709028 (Version 1)
Quarter: 2013Q4

REPORT INFORMATION
  Report Type: Spontaneous
  Country: JP (occurrence: JP)
  Receive Date: 20131125
  Receipt Date: 20131125
  Transmission Date: 20140711
  Serious: Yes (Death, Hospitalization)
  Sender: FDA-Public Use
  Company Number: PHHY2013JP133072

PATIENT
  Age: 73 Year
  Sex: Female

DRUGS (1)
  1. ALLOPURINOL [Suspect]
     Indication: GOUT
     Dosage: 300 MG, QD

REACTIONS (18)
  - Sepsis [Fatal]
  - Human herpesvirus 6 infection [Unknown]
  - Pulmonary oedema [Unknown]
  - Toxic epidermal necrolysis [Unknown]
  - Rash [Unknown]
  - Oropharyngeal pain [Unknown]
  - Pyrexia [Unknown]
  - Lip erosion [Unknown]
  - Oral mucosa erosion [Unknown]
  - Rash generalised [Unknown]
  - Lip haemorrhage [Unknown]
  - Mouth haemorrhage [Unknown]
  - Genital haemorrhage [Unknown]
  - Rash erythematous [Unknown]
  - Blister [Unknown]
  - Skin disorder [Unknown]
  - Conjunctival hyperaemia [Unknown]
  - Epidermal necrosis [Unknown]
